FAERS Safety Report 22321930 (Version 7)
Quarter: 2024Q2

REPORT INFORMATION
  Report Type: Report from Study
  Country: US (occurrence: US)
  Receive Date: 20230516
  Receipt Date: 20240622
  Transmission Date: 20240715
  Serious: Yes (Hospitalization, Other)
  Sender: FDA-Public Use
  Company Number: US-JAZZ PHARMACEUTICALS-2023-US-010407

PATIENT
  Age: 17 Year
  Sex: Male
  Weight: 47 kg

DRUGS (3)
  1. EPIDIOLEX [Suspect]
     Active Substance: CANNABIDIOL
     Indication: Lennox-Gastaut syndrome
     Dosage: 4.8 MILLILITER, BID
     Route: 048
  2. EPIDIOLEX [Suspect]
     Active Substance: CANNABIDIOL
     Dosage: 4.8 MILLILITER, BID
     Route: 048
  3. TOBRAMYCIN [Concomitant]
     Active Substance: TOBRAMYCIN\TOBRAMYCIN SULFATE
     Indication: Product used for unknown indication
     Dosage: 300 MILLIGRAM, BID, 28 DAYS ON AND 28 DAYS OF

REACTIONS (5)
  - Hospitalisation [Unknown]
  - COVID-19 [Unknown]
  - Prosthetic tracheal reconstruction [Unknown]
  - Gastrointestinal disorder [Recovered/Resolved]
  - Emergency care [Unknown]

NARRATIVE: CASE EVENT DATE: 20230601
